FAERS Safety Report 6168818-5 (Version None)
Quarter: 2009Q2

REPORT INFORMATION
  Report Type: 
  Country: None (occurrence: None)
  Receive Date: 20090424
  Receipt Date: 20090424
  Transmission Date: 20091009
  Serious: Yes (Life-Threatening)
  Sender: FDA-Public Use
  Company Number: None

PATIENT
  Age: 31 Year
  Sex: Female
  Weight: 56.246 kg

DRUGS (1)
  1. APRESOLINE [Suspect]
     Indication: HYPERTENSION
     Dosage: 20MG IML INJ
     Dates: start: 19890516, end: 19890517

REACTIONS (2)
  - ASTHMA [None]
  - DRUG HYPERSENSITIVITY [None]
